FAERS Safety Report 6458972-X (Version None)
Quarter: 2009Q4

REPORT INFORMATION
  Report Type: 
  Country: None (occurrence: None)
  Receive Date: 20091127
  Receipt Date: 20091113
  Transmission Date: 20100525
  Serious: Yes (Other)
  Sender: FDA-Public Use
  Company Number: US-ELI_LILLY_AND_COMPANY-US200911003940

PATIENT
  Sex: Female

DRUGS (2)
  1. CYMBALTA [Suspect]
     Dosage: UNK, UNKNOWN
     Route: 065
  2. ZYPREXA [Suspect]
     Indication: MOOD ALTERED
     Dosage: UNK, UNKNOWN
     Route: 065

REACTIONS (5)
  - BLOOD GLUCOSE INCREASED [None]
  - GLOSSODYNIA [None]
  - HEART RATE INCREASED [None]
  - MOOD ALTERED [None]
  - TONGUE INJURY [None]
